FAERS Safety Report 24313075 (Version 2)
Quarter: 2024Q4

REPORT INFORMATION
  Report Type: Report from Study
  Country: US (occurrence: US)
  Receive Date: 20240912
  Receipt Date: 20241001
  Transmission Date: 20250114
  Serious: Yes (Other)
  Sender: NOVARTIS
  Company Number: US-002147023-NVSC2024US180266

PATIENT
  Sex: Female

DRUGS (2)
  1. KISQALI [Suspect]
     Active Substance: RIBOCICLIB
     Indication: Breast cancer
     Dosage: 600 MG, QD
     Route: 048
     Dates: start: 20200727
  2. KISQALI [Suspect]
     Active Substance: RIBOCICLIB
     Indication: Metastases to bone
     Dosage: 200 MG, QD
     Route: 048

REACTIONS (2)
  - HER2 negative breast cancer [Unknown]
  - Intentional underdose [Unknown]
